FAERS Safety Report 6893045-3 (Version None)
Quarter: 2010Q3

REPORT INFORMATION
  Report Type: 
  Country: None (occurrence: None)
  Receive Date: 20100731
  Receipt Date: 20090324
  Transmission Date: 20110219
  Serious: No
  Sender: FDA-Public Use
  Company Number: US-PFIZER INC-2008159343

PATIENT
  Sex: Female
  Weight: 54 kg

DRUGS (4)
  1. NEURONTIN [Suspect]
     Indication: TRIGEMINAL NEURALGIA
     Dosage: UNK
  2. FENTANYL [Suspect]
     Indication: PAIN
     Dosage: 100 MG, UNK
  3. HYDROCODONE [Suspect]
     Indication: PAIN
     Dosage: UNK
  4. TEGRETOL [Suspect]
     Dosage: UNK

REACTIONS (1)
  - DRUG INEFFECTIVE [None]
